FAERS Safety Report 10052226 (Version 1)
Quarter: 2014Q2

REPORT INFORMATION
  Report Type: Spontaneous
  Country: US (occurrence: None)
  Receive Date: 20140401
  Receipt Date: 20140401
  Transmission Date: 20141212
  Serious: Yes (Hospitalization)
  Sender: FDA-Public Use
  Company Number: None

PATIENT
  Age: 9 Year
  Sex: Female
  Weight: 21.9 kg

DRUGS (1)
  1. DEXAMETHASONE [Suspect]

REACTIONS (5)
  - Unresponsive to stimuli [None]
  - Eye movement disorder [None]
  - Seizure like phenomena [None]
  - Posterior reversible encephalopathy syndrome [None]
  - Respiratory depression [None]
